FAERS Safety Report 10088157 (Version 3)
Quarter: 2015Q3

REPORT INFORMATION
  Report Type: Report from Study
  Country: DE (occurrence: DE)
  Receive Date: 20140421
  Receipt Date: 20150901
  Transmission Date: 20151125
  Serious: Yes (Death)
  Sender: FDA-Public Use
  Company Number: DE-BIOGENIDEC-2014BI036050

PATIENT
  Age: 65 Year
  Sex: Male

DRUGS (1)
  1. TYSABRI [Suspect]
     Active Substance: NATALIZUMAB
     Indication: RELAPSING-REMITTING MULTIPLE SCLEROSIS
     Route: 042
     Dates: start: 20080731, end: 20130510

REACTIONS (1)
  - Death [Fatal]

NARRATIVE: CASE EVENT DATE: 20140225
